FAERS Safety Report 16409690 (Version 1)
Quarter: 2019Q2

REPORT INFORMATION
  Report Type: Spontaneous
  Country: GB (occurrence: GB)
  Receive Date: 20190610
  Receipt Date: 20190610
  Transmission Date: 20190711
  Serious: Yes (Other)
  Sender: FDA-Public Use
  Company Number: GB-PFIZER INC-2019242408

PATIENT
  Age: 71 Year
  Sex: Female
  Weight: 88 kg

DRUGS (13)
  1. RAMIPRIL. [Suspect]
     Active Substance: RAMIPRIL
     Dosage: UNK (5MG, 2.5MG, 1.25 MG)
     Route: 065
  2. LOSARTAN. [Concomitant]
     Active Substance: LOSARTAN
     Dosage: 75 MG, 1X/DAY (IN THE MORNING)
     Route: 065
     Dates: start: 20170816
  3. HYLO-FORTE [Concomitant]
     Active Substance: HYALURONATE SODIUM
     Dosage: UNK UNK, AS NEEDED (AS DIRECTED)
     Dates: start: 20170904
  4. AMOXICILLIN. [Concomitant]
     Active Substance: AMOXICILLIN
     Dosage: 1500 MG, 1X/DAY (QD)
     Route: 065
     Dates: start: 20170919
  5. TRIMETHOPRIM. [Concomitant]
     Active Substance: TRIMETHOPRIM
     Dosage: 400 MG, 1X/DAY (QD)
     Route: 065
     Dates: start: 20170815
  6. FOSTAIR [Concomitant]
     Active Substance: BECLOMETHASONE\FORMOTEROL
     Dosage: 2 DF, 1X/DAY (100MICROGRAMS/DOSE / 6MICROGRAMS)
     Route: 065
     Dates: start: 20170612
  7. SPIRIVA [Concomitant]
     Active Substance: TIOTROPIUM BROMIDE MONOHYDRATE
     Dosage: 2 DF, 1X/DAY (QD)
     Route: 065
     Dates: start: 20170904
  8. TRAMADOL. [Concomitant]
     Active Substance: TRAMADOL
     Dosage: UNK UNK, 4X/DAY (1-2 FOUR TIMES A DAY)
     Dates: start: 20170516
  9. NITROFURANTOIN. [Concomitant]
     Active Substance: NITROFURANTOIN
     Dosage: 100 MG, 1X/DAY (QD)
     Route: 065
     Dates: start: 20170628
  10. LEVOTHYROXINE. [Concomitant]
     Active Substance: LEVOTHYROXINE
     Dosage: 50 UG, 1X/DAY (QD)
     Route: 065
     Dates: start: 20170516
  11. AMITRIPTYLINE [Concomitant]
     Active Substance: AMITRIPTYLINE
     Dosage: 25 MG, QD AT NIGHT
     Route: 065
     Dates: start: 20170516
  12. AMITRIPTYLINE [Concomitant]
     Active Substance: AMITRIPTYLINE
     Dosage: 1 DF, 1X/DAY (AT NIGHT)
     Route: 065
     Dates: start: 20170612
  13. SECURON [Concomitant]
     Active Substance: VERAPAMIL HYDROCHLORIDE
     Dosage: 0.5 DF, 1X/DAY
     Route: 065
     Dates: start: 20170801

REACTIONS (2)
  - Vision blurred [Recovered/Resolved]
  - Abdominal pain [Unknown]
